FAERS Safety Report 9314674 (Version 3)
Quarter: 2013Q3

REPORT INFORMATION
  Report Type: Spontaneous
  Country: DE (occurrence: DE)
  Receive Date: 20130529
  Receipt Date: 20130717
  Transmission Date: 20140515
  Serious: Yes (Life-Threatening, Hospitalization)
  Sender: FDA-Public Use
  Company Number: DE-B.I. PHARMACEUTICALS,INC./RIDGEFIELD-2013-DE-00373DE

PATIENT
  Age: 75 Year
  Sex: Female
  Weight: 48 kg

DRUGS (7)
  1. PRADAXA [Suspect]
     Indication: ATRIAL FIBRILLATION
     Dosage: 220 MG
     Route: 048
     Dates: start: 201212, end: 20130510
  2. METOPROLOL [Concomitant]
     Dosage: 190 NR
  3. ATACAND [Concomitant]
     Dosage: 16 MG
  4. L-THYROXIN [Concomitant]
     Dosage: 100 NR
  5. TOREM [Concomitant]
     Dosage: 5 NR
  6. VITAMINE C [Concomitant]
     Dosage: 500 MG
  7. ARCOXIA [Concomitant]
     Dosage: 120 MG

REACTIONS (6)
  - Cerebrovascular accident [Recovered/Resolved]
  - Post procedural haemorrhage [Recovered/Resolved]
  - Diverticulitis intestinal haemorrhagic [Recovered/Resolved]
  - Haemorrhoidal haemorrhage [Recovered/Resolved]
  - Enteritis [Recovered/Resolved]
  - Urethritis [Unknown]
